FAERS Safety Report 26142848 (Version 1)
Quarter: 2025Q4

REPORT INFORMATION
  Report Type: Spontaneous
  Country: US (occurrence: None)
  Receive Date: 20251211
  Receipt Date: 20251211
  Transmission Date: 20260118
  Serious: No
  Sender: UMEDICA LABS
  Company Number: US-Umedica-000724

PATIENT
  Age: 82 Year
  Sex: Male

DRUGS (1)
  1. SILDENAFIL CITRATE [Suspect]
     Active Substance: SILDENAFIL CITRATE
     Indication: Sexual dysfunction

REACTIONS (2)
  - Drug ineffective [Unknown]
  - Extra dose administered [Unknown]
